FAERS Safety Report 12341771 (Version 5)
Quarter: 2018Q4

REPORT INFORMATION
  Report Type: Report from Study
  Country: US (occurrence: US)
  Receive Date: 20160506
  Receipt Date: 20181126
  Transmission Date: 20190204
  Serious: Yes (Other)
  Sender: FDA-Public Use
  Company Number: US-SA-2015SA216272

PATIENT
  Age: 52 Year
  Sex: Female

DRUGS (1)
  1. ALEMTUZUMAB [Suspect]
     Active Substance: ALEMTUZUMAB
     Indication: MULTIPLE SCLEROSIS
     Dosage: 12 MG,QD
     Route: 041
     Dates: start: 20151130, end: 20151204

REACTIONS (13)
  - Throat irritation [Not Recovered/Not Resolved]
  - Fatigue [Not Recovered/Not Resolved]
  - Thrombosis [Unknown]
  - Paraesthesia [Recovered/Resolved]
  - Urinary tract infection [Recovered/Resolved]
  - Bladder catheterisation [Not Recovered/Not Resolved]
  - Unintentional medical device removal [Recovered/Resolved]
  - Contusion [Not Recovered/Not Resolved]
  - Melanocytic naevus [Not Recovered/Not Resolved]
  - Upper respiratory tract infection [Recovered/Resolved]
  - Malaise [Unknown]
  - Fall [Unknown]
  - Oedema peripheral [Unknown]

NARRATIVE: CASE EVENT DATE: 201512
